FAERS Safety Report 20649458 (Version 1)
Quarter: 2022Q1

REPORT INFORMATION
  Report Type: Spontaneous
  Country: SI (occurrence: SI)
  Receive Date: 20220329
  Receipt Date: 20220329
  Transmission Date: 20220423
  Serious: Yes (Other)
  Sender: FDA-Public Use
  Company Number: SI-002147023-NVSC2022SI035246

PATIENT
  Age: 42 Year
  Sex: Female

DRUGS (4)
  1. LETROZOLE [Suspect]
     Active Substance: LETROZOLE
     Indication: Breast cancer
     Dosage: 2.5 MILLIGRAM, QD,2.5 MG, QD
     Route: 065
     Dates: start: 201806
  2. RIBOCICLIB [Suspect]
     Active Substance: RIBOCICLIB
     Indication: Breast cancer
     Dosage: 400 MG, QD (3 WEEKS ON, 1 WEEK OFF)
     Route: 065
  3. RIBOCICLIB [Suspect]
     Active Substance: RIBOCICLIB
     Dosage: 600 MG (3 WEEKS ON, 1 WEEK OFF)
     Route: 065
     Dates: start: 201806
  4. DENOSUMAB [Concomitant]
     Active Substance: DENOSUMAB
     Indication: Product used for unknown indication
     Dosage: UNK, Q28D (EVERY 4 WEEKS)
     Route: 065

REACTIONS (7)
  - Febrile neutropenia [Unknown]
  - Osteonecrosis [Not Recovered/Not Resolved]
  - Neutropenia [Unknown]
  - Metastases to lung [Unknown]
  - Metastases to bone [Not Recovered/Not Resolved]
  - Fatigue [Unknown]
  - Arthralgia [Not Recovered/Not Resolved]

NARRATIVE: CASE EVENT DATE: 20210101
